FAERS Safety Report 9490521 (Version 1)
Quarter: 2013Q3

REPORT INFORMATION
  Report Type: Spontaneous
  Country: US (occurrence: US)
  Receive Date: 20130830
  Receipt Date: 20130830
  Transmission Date: 20140515
  Serious: No
  Sender: FDA-Public Use
  Company Number: US-BAYER-2013-104954

PATIENT
  Sex: Female
  Weight: 83.9 kg

DRUGS (9)
  1. BETASERON [Suspect]
     Dosage: 0.025 MG, QOD
     Route: 058
  2. LIPITOR [Concomitant]
     Dosage: 10 MG, UNK
  3. ATENOLOL [Concomitant]
     Dosage: 25 MG, UNK
  4. OMEPRAZOLE [Concomitant]
     Dosage: 20 MG, UNK
  5. ALTACE [Concomitant]
     Dosage: 10 MG, UNK
  6. AMITRIPTYLIN [Concomitant]
     Dosage: 75 MG, QD 50+
  7. VITAMIN D3 [Concomitant]
     Dosage: 10000 U, UNK
  8. VITAMIN B12 [Concomitant]
     Dosage: 1 MG, UNK
  9. MILK THISTLE [Concomitant]
     Dosage: 1000 MG, UNK

REACTIONS (2)
  - Heart rate increased [Unknown]
  - Injection site reaction [Unknown]
